FAERS Safety Report 24124478 (Version 2)
Quarter: 2024Q3

REPORT INFORMATION
  Report Type: Spontaneous
  Country: US (occurrence: US)
  Receive Date: 20240723
  Receipt Date: 20240819
  Transmission Date: 20241016
  Serious: Yes (Death, Hospitalization)
  Sender: TEVA
  Company Number: US-TEVA-VS-3220452

PATIENT
  Age: 71 Year
  Sex: Female

DRUGS (2)
  1. AZITHROMYCIN [Suspect]
     Active Substance: AZITHROMYCIN
     Indication: Bronchitis
     Route: 065
  2. LISINOPRIL [Concomitant]
     Active Substance: LISINOPRIL
     Indication: Hypertension
     Dosage: DISCONTINUED
     Route: 065

REACTIONS (7)
  - SJS-TEN overlap [Fatal]
  - Urinary tract infection [Fatal]
  - Pneumonia [Fatal]
  - Bacterial infection [Fatal]
  - Cardiac arrest [Fatal]
  - Bacteraemia [Fatal]
  - Sepsis [Fatal]
